FAERS Safety Report 20118691 (Version 3)
Quarter: 2021Q4

REPORT INFORMATION
  Report Type: Spontaneous
  Country: US (occurrence: US)
  Receive Date: 20211126
  Receipt Date: 20211221
  Transmission Date: 20220303
  Serious: Yes (Death, Hospitalization)
  Sender: FDA-Public Use
  Company Number: US-CELGENE-USA-20211104993

PATIENT
  Sex: Male
  Weight: 39.952 kg

DRUGS (5)
  1. REVLIMID [Suspect]
     Active Substance: LENALIDOMIDE
     Indication: Plasma cell myeloma
     Dosage: 25 MILLIGRAM
     Route: 048
     Dates: start: 202110
  2. REVLIMID [Suspect]
     Active Substance: LENALIDOMIDE
     Dosage: 25 MILLIGRAM
     Route: 048
     Dates: start: 20211101
  3. ZOMETA [Concomitant]
     Active Substance: ZOLEDRONIC ACID
     Indication: Plasma cell myeloma
     Dosage: 4 MILLIGRAM
     Route: 065
  4. DECADRON [Concomitant]
     Active Substance: DEXAMETHASONE
     Indication: Plasma cell myeloma
     Dosage: 5 MILLIGRAM
     Route: 065
  5. Immunoglobulin [Concomitant]
     Indication: Plasma cell myeloma
     Dosage: 15 GRAM
     Route: 041

REACTIONS (3)
  - Weight decreased [Fatal]
  - Rash [Fatal]
  - Fatigue [Fatal]

NARRATIVE: CASE EVENT DATE: 20210101
